FAERS Safety Report 7078122-9 (Version None)
Quarter: 2010Q4

REPORT INFORMATION
  Report Type: 
  Country: None (occurrence: None)
  Receive Date: 20101102
  Receipt Date: 20101025
  Transmission Date: 20110411
  Serious: No
  Sender: FDA-Public Use
  Company Number: US-BIOGENIDEC-2010BI037614

PATIENT
  Age: 40 Year
  Sex: Female

DRUGS (2)
  1. TYSABRI [Suspect]
     Indication: MULTIPLE SCLEROSIS
     Route: 042
     Dates: start: 20080229, end: 20100326
  2. TYSABRI [Suspect]
     Route: 042
     Dates: start: 20101018

REACTIONS (4)
  - COUGH [None]
  - OROPHARYNGEAL PAIN [None]
  - PYREXIA [None]
  - SPEECH DISORDER [None]
